FAERS Safety Report 15554505 (Version 1)
Quarter: 2018Q4

REPORT INFORMATION
  Report Type: Spontaneous
  Country: US (occurrence: US)
  Receive Date: 20181022
  Receipt Date: 20181022
  Transmission Date: 20190205
  Serious: No
  Sender: FDA-Public Use
  Company Number: None

PATIENT
  Age: 57 Year
  Sex: Male
  Weight: 93 kg

DRUGS (1)
  1. ETANERCEPT [Suspect]
     Active Substance: ETANERCEPT
     Indication: RHEUMATOID ARTHRITIS
     Dates: start: 20180504, end: 20180626

REACTIONS (5)
  - Headache [None]
  - Anaemia [None]
  - Dizziness [None]
  - Tinnitus [None]
  - Vertigo [None]

NARRATIVE: CASE EVENT DATE: 20180629
